FAERS Safety Report 7603747-9 (Version None)
Quarter: 2011Q3

REPORT INFORMATION
  Report Type: 
  Country: None (occurrence: None)
  Receive Date: 20110712
  Receipt Date: 20110705
  Transmission Date: 20111222
  Serious: Yes (Hospitalization, Other)
  Sender: FDA-Public Use
  Company Number: BR-GLAXOSMITHKLINE-A0835454B

PATIENT
  Sex: Female

DRUGS (4)
  1. APIXABAN [Suspect]
     Indication: THROMBOSIS PROPHYLAXIS
     Dosage: 5MG PER DAY
     Route: 048
     Dates: start: 20110211
  2. METOPROLOL TARTRATE [Concomitant]
     Dates: start: 20091222
  3. FUROSEMIDE [Concomitant]
     Dates: start: 20060301
  4. DIGOXIN [Suspect]
     Dates: start: 20060301, end: 20110616

REACTIONS (1)
  - BRADYARRHYTHMIA [None]
